FAERS Safety Report 7226404-X (Version None)
Quarter: 2011Q1

REPORT INFORMATION
  Report Type: 
  Country: None (occurrence: None)
  Receive Date: 20110110
  Receipt Date: 20110110
  Transmission Date: 20110831
  Serious: Yes (Disabling, Other)
  Sender: FDA-Public Use
  Company Number: None

PATIENT
  Sex: Female
  Weight: 11.52 kg

DRUGS (2)
  1. CEPHALEXIN [Suspect]
     Indication: SCARLET FEVER
     Dosage: 1 TSP. TID PO
     Route: 048
  2. CEPHALEXIN [Suspect]
     Indication: PHARYNGITIS STREPTOCOCCAL
     Dosage: 1 TSP. TID PO
     Route: 048

REACTIONS (1)
  - ANAPHYLACTIC REACTION [None]
